FAERS Safety Report 7527707-1 (Version None)
Quarter: 2011Q2

REPORT INFORMATION
  Report Type: 
  Country: None (occurrence: None)
  Receive Date: 20110607
  Receipt Date: 20110524
  Transmission Date: 20111010
  Serious: Yes (Hospitalization, Other)
  Sender: FDA-Public Use
  Company Number: PHHY2011BR46300

PATIENT
  Sex: Male

DRUGS (1)
  1. EXFORGE [Suspect]
     Indication: HYPERTENSION
     Dosage: 160 MG VALS AND 05 MG AMLO, 1 TABLET DAILY
     Route: 048
     Dates: end: 20110126

REACTIONS (2)
  - BLOOD DISORDER [None]
  - POST PROCEDURAL COMPLICATION [None]
